FAERS Safety Report 10431554 (Version 1)
Quarter: 2014Q3

REPORT INFORMATION
  Report Type: Spontaneous
  Country: GB (occurrence: GB)
  Receive Date: 20140904
  Receipt Date: 20140904
  Transmission Date: 20150326
  Serious: Yes (Other)
  Sender: FDA-Public Use
  Company Number: GB-PFIZER INC-2014244556

PATIENT
  Age: 30 Year
  Sex: Female

DRUGS (1)
  1. CHAMPIX [Suspect]
     Active Substance: VARENICLINE TARTRATE
     Indication: SMOKING CESSATION THERAPY
     Dosage: 1 MG, 2X/DAY
     Route: 048
     Dates: start: 20140418, end: 20140430

REACTIONS (3)
  - Abortion spontaneous [Unknown]
  - Premature rupture of membranes [Unknown]
  - Infection [Unknown]

NARRATIVE: CASE EVENT DATE: 2014
